FAERS Safety Report 21126826 (Version 1)
Quarter: 2022Q3

REPORT INFORMATION
  Report Type: Spontaneous
  Country: CA (occurrence: None)
  Receive Date: 20220725
  Receipt Date: 20220725
  Transmission Date: 20221027
  Serious: Yes (Hospitalization)
  Sender: FDA-Public Use
  Company Number: None

PATIENT
  Age: 19 Year
  Sex: Female
  Weight: 58.5 kg

DRUGS (1)
  1. REXULTI [Suspect]
     Active Substance: BREXPIPRAZOLE
     Indication: Bipolar II disorder
     Route: 048
     Dates: start: 20220301, end: 20220718

REACTIONS (3)
  - Suicidal ideation [None]
  - Drug ineffective [None]
  - Intentional overdose [None]

NARRATIVE: CASE EVENT DATE: 20220718
